FAERS Safety Report 4474198-3 (Version None)
Quarter: 2004Q4

REPORT INFORMATION
  Report Type: 
  Country: None (occurrence: None)
  Receive Date: 20041012
  Receipt Date: 20040929
  Transmission Date: 20050328
  Serious: Yes (Other)
  Sender: FDA-Public Use
  Company Number: EM2004-0495

PATIENT
  Sex: Male

DRUGS (1)
  1. PROLEUKIN [Suspect]
     Indication: MALIGNANT MELANOMA
     Dosage: 72 HOUR  CONT, INFUSION, CONT IV INFUS
     Dates: start: 20030201, end: 20040925

REACTIONS (1)
  - LEUKOCYTOCLASTIC VASCULITIS [None]
